FAERS Safety Report 24615977 (Version 1)
Quarter: 2024Q4

REPORT INFORMATION
  Report Type: Spontaneous
  Country: GB (occurrence: GB)
  Receive Date: 20241113
  Receipt Date: 20241113
  Transmission Date: 20250115
  Serious: Yes (Other)
  Sender: TEVA
  Company Number: None

PATIENT
  Sex: Female

DRUGS (2)
  1. VENLAFAXINE [Suspect]
     Active Substance: VENLAFAXINE HYDROCHLORIDE
     Dosage: 75MG A DAY FIRST, AND INCREASED TO 150 MG A DAY.
     Route: 065
  2. VENLAFAXINE [Suspect]
     Active Substance: VENLAFAXINE HYDROCHLORIDE
     Dosage: 75MG A DAY FIRST, AND INCREASED TO 150 MG A DAY.
     Route: 065

REACTIONS (1)
  - Temporomandibular pain and dysfunction syndrome [Unknown]
